FAERS Safety Report 12509068 (Version 2)
Quarter: 2016Q3

REPORT INFORMATION
  Report Type: Spontaneous
  Country: FR (occurrence: FR)
  Receive Date: 20160629
  Receipt Date: 20160707
  Transmission Date: 20161109
  Serious: Yes (Hospitalization)
  Sender: FDA-Public Use
  Company Number: FR-FRI-1000085607

PATIENT
  Age: 54 Year
  Sex: Male

DRUGS (18)
  1. TERCIAN [Suspect]
     Active Substance: CYAMEMAZINE
     Indication: DEPRESSION
     Dosage: 50 MG
     Route: 048
     Dates: end: 20160313
  2. TERCIAN [Suspect]
     Active Substance: CYAMEMAZINE
     Dosage: 100 MG
     Route: 048
     Dates: start: 20160313
  3. SERESTA [Suspect]
     Active Substance: OXAZEPAM
     Indication: PRODUCT USED FOR UNKNOWN INDICATION
     Dosage: 95 MG
     Route: 048
  4. BACLOFEN. [Suspect]
     Active Substance: BACLOFEN
     Indication: PRODUCT USED FOR UNKNOWN INDICATION
     Dosage: 200 MG
     Route: 048
  5. ZOPLICONE [Concomitant]
     Active Substance: ZOPICLONE
  6. ANETHOLE TRITHIONE [Concomitant]
  7. PARACETAMOL [Concomitant]
     Active Substance: ACETAMINOPHEN
  8. KARDEGIC [Suspect]
     Active Substance: ASPIRIN LYSINE
     Indication: PRODUCT USED FOR UNKNOWN INDICATION
     Dosage: 75 MG
     Route: 048
     Dates: start: 201506
  9. EFIENT [Suspect]
     Active Substance: PRASUGREL HYDROCHLORIDE
     Indication: PRODUCT USED FOR UNKNOWN INDICATION
     Dosage: 10 MG
     Route: 048
     Dates: start: 201506
  10. OXAZEPAM. [Concomitant]
     Active Substance: OXAZEPAM
  11. MILNACIPRAN [Suspect]
     Active Substance: MILNACIPRAN
     Indication: DEPRESSION
     Dosage: 100 MG (2 CAPSULES PER DAY)
     Route: 048
     Dates: end: 20160331
  12. ATORVASTATINE [Suspect]
     Active Substance: ATORVASTATIN
     Indication: PRODUCT USED FOR UNKNOWN INDICATION
     Dosage: 80 MG
     Route: 048
  13. UVEDOSE [Concomitant]
     Active Substance: CHOLECALCIFEROL
  14. COVERSYL [Suspect]
     Active Substance: PERINDOPRIL
     Indication: HYPERTENSION
     Dosage: 5 MG
     Route: 065
  15. KREDEX [Suspect]
     Active Substance: CARVEDILOL
     Indication: PRODUCT USED FOR UNKNOWN INDICATION
     Dosage: 12.5 MG
     Route: 048
     Dates: start: 201506
  16. CARVEDILOL. [Concomitant]
     Active Substance: CARVEDILOL
  17. HAVLANE [Concomitant]
     Active Substance: LOPRAZOLAM
     Dates: end: 20160313
  18. NICOPATCH [Concomitant]
     Active Substance: NICOTINE

REACTIONS (3)
  - Headache [Recovered/Resolved]
  - Vertigo [Recovered/Resolved]
  - Hyponatraemia [Recovering/Resolving]

NARRATIVE: CASE EVENT DATE: 20160331
